FAERS Safety Report 10465061 (Version 6)
Quarter: 2016Q3

REPORT INFORMATION
  Report Type: Spontaneous
  Country: US (occurrence: US)
  Receive Date: 20140919
  Receipt Date: 20160921
  Transmission Date: 20161109
  Serious: Yes (Hospitalization, Disabling, Other)
  Sender: FDA-Public Use
  Company Number: US-009507513-1409USA009702

PATIENT
  Sex: Female
  Weight: 81.63 kg

DRUGS (6)
  1. FOSAMAX [Suspect]
     Active Substance: ALENDRONATE SODIUM
     Indication: OSTEOPOROSIS
     Dosage: 70 MG, QW
     Route: 048
     Dates: start: 20031013, end: 2008
  2. ALENDRONATE SODIUM. [Suspect]
     Active Substance: ALENDRONATE SODIUM
     Indication: OSTEOPOROSIS
     Dosage: 70 MG, QW
     Route: 048
     Dates: start: 20100930, end: 201212
  3. VITAMIN D [Concomitant]
     Active Substance: CHOLECALCIFEROL
     Dosage: 2000 UNITS, DAILY
     Route: 048
     Dates: start: 2003
  4. ALENDRONATE SODIUM. [Suspect]
     Active Substance: ALENDRONATE SODIUM
     Indication: OSTEOPOROSIS
     Dosage: 70 MG, QW
     Route: 048
     Dates: start: 20080324, end: 200910
  5. FOLIC ACID. [Concomitant]
     Active Substance: FOLIC ACID
     Dosage: 20 MG, QD
     Route: 048
     Dates: start: 2003
  6. CALCIUM CARBONATE. [Concomitant]
     Active Substance: CALCIUM CARBONATE
     Dosage: 500 MG, QD
     Route: 048
     Dates: start: 2003

REACTIONS (61)
  - Cardiac failure congestive [Unknown]
  - Atrial fibrillation [Unknown]
  - Staphylococcal infection [Unknown]
  - Hypertension [Unknown]
  - Rib fracture [Unknown]
  - Axillary mass [Unknown]
  - Platelet count increased [Unknown]
  - Acute kidney injury [Recovered/Resolved]
  - Hypernatraemia [Unknown]
  - Gastrooesophageal reflux disease [Unknown]
  - Back pain [Unknown]
  - Dilatation atrial [Unknown]
  - Arthritis [Unknown]
  - Pulmonary embolism [Unknown]
  - Poor venous access [Unknown]
  - Arthropathy [Unknown]
  - Pneumonia [Unknown]
  - Glaucoma [Unknown]
  - Thrombocytosis [Unknown]
  - Obesity [Unknown]
  - Asthma [Unknown]
  - Muscle spasms [Unknown]
  - Arthralgia [Unknown]
  - Haemorrhagic anaemia [Not Recovered/Not Resolved]
  - Vascular operation [Unknown]
  - Arthropathy [Unknown]
  - Atrial fibrillation [Not Recovered/Not Resolved]
  - Coronary artery disease [Unknown]
  - Sleep apnoea syndrome [Unknown]
  - Clavicle fracture [Unknown]
  - Dyspepsia [Unknown]
  - Arthropathy [Unknown]
  - Chronic obstructive pulmonary disease [Unknown]
  - Chronic kidney disease [Unknown]
  - Periprosthetic fracture [Unknown]
  - Mitral valve incompetence [Unknown]
  - Osteomyelitis [Unknown]
  - Pulmonary hypertension [Unknown]
  - Atrial septal defect [Unknown]
  - Insomnia [Unknown]
  - Femur fracture [Not Recovered/Not Resolved]
  - Pleural effusion [Unknown]
  - Bone pain [Unknown]
  - C-reactive protein increased [Unknown]
  - Arthropathy [Unknown]
  - Urinary tract infection [Recovered/Resolved]
  - Blood albumin decreased [Unknown]
  - Hypokalaemia [Unknown]
  - Hypothyroidism [Unknown]
  - Tricuspid valve incompetence [Unknown]
  - Breast cancer [Unknown]
  - Hyperlipidaemia [Unknown]
  - Hepatic cyst [Unknown]
  - Decubitus ulcer [Unknown]
  - Pain in extremity [Unknown]
  - Red blood cell sedimentation rate increased [Unknown]
  - Spinal compression fracture [Unknown]
  - Low turnover osteopathy [Not Recovered/Not Resolved]
  - Osteoarthritis [Unknown]
  - Lipoma [Unknown]
  - Depression [Not Recovered/Not Resolved]

NARRATIVE: CASE EVENT DATE: 20031114
